FAERS Safety Report 13902457 (Version 2)
Quarter: 2017Q3

REPORT INFORMATION
  Report Type: Spontaneous
  Country: US (occurrence: US)
  Receive Date: 20170824
  Receipt Date: 20170824
  Transmission Date: 20171127
  Serious: Yes (Hospitalization)
  Sender: FDA-Public Use
  Company Number: US-CIPLA (EU) LIMITED-STD201401-000181

PATIENT

DRUGS (5)
  1. AMLODIPINE [Suspect]
     Active Substance: AMLODIPINE BESYLATE
     Dosage: 5 MG, QD
     Route: 048
  2. PREGABALIN. [Concomitant]
     Active Substance: PREGABALIN
     Dosage: 150 MG, QD
     Route: 048
  3. ZIPRASIDONE. [Concomitant]
     Active Substance: ZIPRASIDONE
     Dosage: 60 MG, QD
     Route: 048
  4. ALCOHOL. [Suspect]
     Active Substance: ALCOHOL
     Dosage: UNK, INGESTED AN UNDETERMINED AMOUNT OF ETHANOL
     Route: 048
  5. AMLODIPINE [Suspect]
     Active Substance: AMLODIPINE BESYLATE
     Dosage: UNK, INGESTED 70 TABLETS OF AMLODIPINE 5MG
     Route: 048

REACTIONS (5)
  - Overdose [Unknown]
  - Poisoning [Unknown]
  - Shock [Recovered/Resolved]
  - Anxiety [Unknown]
  - Pleural effusion [Recovered/Resolved]
